FAERS Safety Report 17928580 (Version 3)
Quarter: 2020Q3

REPORT INFORMATION
  Report Type: Spontaneous
  Country: JP (occurrence: JP)
  Receive Date: 20200623
  Receipt Date: 20200724
  Transmission Date: 20201103
  Serious: Yes (Other)
  Sender: FDA-Public Use
  Company Number: JP-FERRINGPH-2020FE03904

PATIENT
  Age: 50 Year
  Sex: Male

DRUGS (4)
  1. DESMOPRESSIN KYOWA [Suspect]
     Active Substance: DESMOPRESSIN
     Indication: DIABETES INSIPIDUS
     Route: 045
  2. MINIRINMELT [Suspect]
     Active Substance: DESMOPRESSIN ACETATE
     Dosage: CUTTING TABLETS OF 60 UG TO HALVES OR THREE QUARTERS
  3. MINIRINMELT [Suspect]
     Active Substance: DESMOPRESSIN ACETATE
     Indication: DIABETES INSIPIDUS
     Dosage: 60 UG IN THE AFTERNOON AND BEFORE BED, OR 75 UG IN THE AFTERNOON AND BEFORE BED
     Route: 065
  4. LOXOPROFEN [Concomitant]
     Active Substance: LOXOPROFEN
     Route: 065

REACTIONS (19)
  - Anorectal disorder [Unknown]
  - Oedema [Unknown]
  - Glycosuria [Unknown]
  - Obesity [Unknown]
  - Urinary retention [Unknown]
  - Oral disorder [Unknown]
  - Headache [Unknown]
  - Hyperhidrosis [Unknown]
  - Monoplegia [Unknown]
  - Bladder catheterisation [Unknown]
  - Physical disability [Unknown]
  - Micturition disorder [Unknown]
  - Product communication issue [Unknown]
  - Spinal operation [Unknown]
  - Off label use [Unknown]
  - Oedema [Unknown]
  - Spinal ligament ossification [Unknown]
  - Drug interaction [Unknown]
  - Wrong technique in product usage process [Unknown]

NARRATIVE: CASE EVENT DATE: 2018
